FAERS Safety Report 14426948 (Version 1)
Quarter: 2018Q1

REPORT INFORMATION
  Report Type: Not Available
  Country: US (occurrence: US)
  Receive Date: 20180123
  Receipt Date: 20180123
  Transmission Date: 20180509
  Serious: Yes (Life-Threatening, Other)
  Sender: FDA-Public Use
  Company Number: US-C B FLEET CO INC-201801-US-000056

PATIENT
  Age: 8 Year
  Sex: Female
  Weight: 22 kg

DRUGS (3)
  1. DRAMAMINE FOR KIDS [Suspect]
     Active Substance: DIMENHYDRINATE
     Indication: MOTION SICKNESS
     Route: 048
     Dates: start: 20171218, end: 20171218
  2. PROBIOTICS [Concomitant]
     Active Substance: PROBIOTICS NOS
  3. VITAMINS [Concomitant]
     Active Substance: VITAMINS

REACTIONS (1)
  - Seizure [Recovered/Resolved]

NARRATIVE: CASE EVENT DATE: 20171218
